FAERS Safety Report 6390162-1 (Version None)
Quarter: 2009Q4

REPORT INFORMATION
  Report Type: 
  Country: None (occurrence: None)
  Receive Date: 20091003
  Receipt Date: 20090921
  Transmission Date: 20100525
  Serious: Yes (Other)
  Sender: FDA-Public Use
  Company Number: 232481K09USA

PATIENT
  Age: 54 Year
  Sex: Female

DRUGS (1)
  1. REBIF [Suspect]
     Indication: MULTIPLE SCLEROSIS
     Dosage: 44 MCG, 3 IN 1 WEEKS, SUBCUTANEOUS
     Route: 058
     Dates: start: 20040706

REACTIONS (4)
  - MUSCULAR WEAKNESS [None]
  - PAIN IN EXTREMITY [None]
  - TRIGEMINAL NEURALGIA [None]
  - WEIGHT DECREASED [None]
